FAERS Safety Report 6371615-9 (Version None)
Quarter: 2009Q3

REPORT INFORMATION
  Report Type: 
  Country: None (occurrence: None)
  Receive Date: 20090923
  Receipt Date: 20090217
  Transmission Date: 20100115
  Serious: Yes (Hospitalization, Other)
  Sender: FDA-Public Use
  Company Number: US-ASTRAZENECA-2008UW06928

PATIENT
  Age: 40 Year
  Sex: Male
  Weight: 86.2 kg

DRUGS (5)
  1. SEROQUEL [Suspect]
     Indication: DEPRESSION
     Route: 048
     Dates: start: 20020101, end: 20030201
  2. SEROQUEL [Suspect]
     Route: 048
     Dates: start: 20030301, end: 20030601
  3. RISPERDAL [Concomitant]
     Dates: start: 20030801, end: 20050701
  4. THORAZINE [Concomitant]
     Dates: start: 20041101
  5. ZYPREXA [Concomitant]
     Dates: start: 20011101, end: 20021101

REACTIONS (5)
  - BONE DISORDER [None]
  - DIABETES MELLITUS [None]
  - DIABETIC COMA [None]
  - GLAUCOMA [None]
  - PANCREATITIS [None]
